FAERS Safety Report 21101257 (Version 1)
Quarter: 2022Q3

REPORT INFORMATION
  Report Type: Spontaneous
  Country: CN (occurrence: CN)
  Receive Date: 20220719
  Receipt Date: 20220719
  Transmission Date: 20221027
  Serious: Yes (Other)
  Sender: FDA-Public Use
  Company Number: CN-PFIZER INC-PV202200024254

PATIENT
  Age: 29 Year
  Sex: Female
  Weight: 42.5 kg

DRUGS (8)
  1. CYTARABINE [Suspect]
     Active Substance: CYTARABINE
     Indication: Acute promyelocytic leukaemia
     Dosage: 0.500 G, 1X/DAY
     Route: 037
     Dates: start: 20220307, end: 20220307
  2. CYTARABINE [Suspect]
     Active Substance: CYTARABINE
     Dosage: 0.140 G, 1X/DAY
     Route: 041
     Dates: start: 20220309, end: 20220313
  3. METHOTREXATE SODIUM [Suspect]
     Active Substance: METHOTREXATE SODIUM
     Indication: Acute promyelocytic leukaemia
     Dosage: 5.000 ML, 1X/DAY
     Route: 037
     Dates: start: 20220307, end: 20220307
  4. SODIUM CHLORIDE [Suspect]
     Active Substance: SODIUM CHLORIDE
     Indication: Acute promyelocytic leukaemia
     Dosage: 10.000 ML, 1X/DAY
     Route: 037
     Dates: start: 20220307, end: 20220307
  5. IDARUBICIN HYDROCHLORIDE [Suspect]
     Active Substance: IDARUBICIN HYDROCHLORIDE
     Indication: Acute promyelocytic leukaemia
     Dosage: 8.000 MG, 1X/DAY
     Route: 042
     Dates: start: 20220309, end: 20220311
  6. SODIUM CHLORIDE [Concomitant]
     Active Substance: SODIUM CHLORIDE
     Indication: Vehicle solution use
     Dosage: 100 ML, 1X/DAY
     Route: 037
     Dates: start: 20220307, end: 20220307
  7. SODIUM CHLORIDE [Concomitant]
     Active Substance: SODIUM CHLORIDE
     Dosage: 40 ML, 1X/DAY
     Route: 042
     Dates: start: 20220309, end: 20220311
  8. SODIUM CHLORIDE [Concomitant]
     Active Substance: SODIUM CHLORIDE
     Indication: Vehicle solution use
     Dosage: 250.000 ML, 1X/DAY
     Route: 041
     Dates: start: 20220309, end: 20220313

REACTIONS (1)
  - Full blood count decreased [Recovering/Resolving]

NARRATIVE: CASE EVENT DATE: 20220323
